FAERS Safety Report 20776864 (Version 8)
Quarter: 2023Q1

REPORT INFORMATION
  Report Type: Report from Study
  Country: US (occurrence: US)
  Receive Date: 20220502
  Receipt Date: 20230106
  Transmission Date: 20230417
  Serious: Yes (Other)
  Sender: FDA-Public Use
  Company Number: US-MALLINCKRODT-T202201660

PATIENT
  Sex: Female
  Weight: 111 kg

DRUGS (6)
  1. CORTICOTROPIN [Suspect]
     Active Substance: CORTICOTROPIN
     Indication: Systemic lupus erythematosus
     Dosage: 80 UNITS (1 MILLILITER), BIW
     Route: 058
     Dates: start: 202010, end: 202010
  2. CORTICOTROPIN [Suspect]
     Active Substance: CORTICOTROPIN
     Indication: Osteoarthritis
     Dosage: 7.5 MILLILITER, TWICE A WEEK
     Route: 065
     Dates: start: 202010, end: 202010
  3. CORTICOTROPIN [Suspect]
     Active Substance: CORTICOTROPIN
     Indication: Lumbar spinal stenosis
     Dosage: 80 UNITS (1 MILLILITER), TWICE A WEEK
     Route: 058
     Dates: start: 202010, end: 202010
  4. CORTICOTROPIN [Suspect]
     Active Substance: CORTICOTROPIN
     Dosage: 60 UNITS, 0.5 ML, TWICE A WEEK
     Route: 065
     Dates: start: 202010
  5. CORTICOTROPIN [Suspect]
     Active Substance: CORTICOTROPIN
     Dosage: 80 UNITS, TWICE A WEEK
     Route: 065
  6. PREDNISONE [Concomitant]
     Active Substance: PREDNISONE
     Indication: Product used for unknown indication
     Dosage: UNK
     Route: 065

REACTIONS (9)
  - Diabetes mellitus [Recovering/Resolving]
  - Skin discolouration [Not Recovered/Not Resolved]
  - Injury associated with device [Not Recovered/Not Resolved]
  - Illness [Unknown]
  - Cough [Unknown]
  - Blood pressure increased [Unknown]
  - Malaise [Unknown]
  - Overdose [Unknown]
  - Product dose omission issue [Unknown]

NARRATIVE: CASE EVENT DATE: 20220101
